FAERS Safety Report 5315202-X (Version None)
Quarter: 2007Q2

REPORT INFORMATION
  Report Type: 
  Country: None (occurrence: None)
  Receive Date: 20070502
  Receipt Date: 20070421
  Transmission Date: 20071010
  Serious: Yes (Other)
  Sender: FDA-Public Use
  Company Number: US-PFIZER INC-2007019074

PATIENT
  Sex: Female

DRUGS (2)
  1. GLUCOTROL [Suspect]
  2. INSULIN DETEMIR [Suspect]

REACTIONS (1)
  - BONE MARROW FAILURE [None]
